FAERS Safety Report 8017522-7 (Version None)
Quarter: 2011Q4

REPORT INFORMATION
  Report Type: 
  Country: None (occurrence: None)
  Receive Date: 20111228
  Receipt Date: 20111228
  Transmission Date: 20120403
  Serious: Yes (Life-Threatening)
  Sender: FDA-Public Use
  Company Number: None

PATIENT
  Sex: Female
  Weight: 92.5338 kg

DRUGS (2)
  1. TAMOXIFEN CITRATE [Suspect]
     Indication: PROPHYLAXIS
     Dosage: 1 TAB DAILY DAILY
     Dates: start: 20090101
  2. TAMOXIFEN CITRATE [Suspect]
     Indication: NEOPLASM MALIGNANT
     Dosage: 1 TAB DAILY DAILY
     Dates: start: 20090101

REACTIONS (1)
  - PULMONARY EMBOLISM [None]
